FAERS Safety Report 5256448-9 (Version None)
Quarter: 2007Q1

REPORT INFORMATION
  Report Type: 
  Country: None (occurrence: None)
  Receive Date: 20070306
  Receipt Date: 20070221
  Transmission Date: 20070707
  Serious: Yes (Hospitalization, Other)
  Sender: FDA-Public Use
  Company Number: US-ELI_LILLY_AND_COMPANY-US200603004574

PATIENT
  Age: 44 Year
  Sex: Male
  Weight: 113.38 kg

DRUGS (3)
  1. PROZAC [Concomitant]
  2. ATENOLOL [Concomitant]
  3. ZYPREXA [Suspect]
     Indication: DEPRESSION
     Dates: start: 20031001, end: 20050701

REACTIONS (10)
  - BLOOD CHOLESTEROL INCREASED [None]
  - BLOOD TRIGLYCERIDES INCREASED [None]
  - DIABETES MELLITUS [None]
  - HEPATITIS VIRAL [None]
  - HYPERTENSION [None]
  - METABOLIC DISORDER [None]
  - MUMPS [None]
  - NEUROPATHY [None]
  - OBESITY [None]
  - PANCREATITIS [None]
